FAERS Safety Report 16423927 (Version 2)
Quarter: 2024Q3

REPORT INFORMATION
  Report Type: Report from Study
  Country: IT (occurrence: IT)
  Receive Date: 20190613
  Receipt Date: 20240924
  Transmission Date: 20241016
  Serious: Yes (Other)
  Sender: TEVA
  Company Number: None

PATIENT
  Age: 83 Year
  Sex: Female
  Weight: 60 kg

DRUGS (9)
  1. AMIODARONE [Interacting]
     Active Substance: AMIODARONE
     Indication: Product used for unknown indication
     Dosage: AMIODARONE HCL
     Route: 048
     Dates: start: 20190310
  2. FUROSEMIDE [Interacting]
     Active Substance: FUROSEMIDE
     Indication: Product used for unknown indication
     Route: 048
     Dates: start: 20190312
  3. POTASSIUM CHLORIDE [Concomitant]
     Active Substance: POTASSIUM CHLORIDE
     Indication: Product used for unknown indication
     Dosage: UNK
     Route: 065
  4. LANSOPRAZOLE [Interacting]
     Active Substance: LANSOPRAZOLE
     Indication: Product used for unknown indication
     Route: 048
     Dates: start: 20190310
  5. ENALAPRIL [Concomitant]
     Active Substance: ENALAPRIL
     Indication: Product used for unknown indication
     Dosage: UNK
     Route: 065
  6. CANRENONE [Concomitant]
     Active Substance: CANRENONE
     Indication: Product used for unknown indication
     Dosage: UNK
     Route: 065
  7. CEFTRIAXONE [Interacting]
     Active Substance: CEFTRIAXONE\CEFTRIAXONE SODIUM
     Indication: Product used for unknown indication
     Dosage: CEFTRIAXONE SODIUM
     Route: 065
     Dates: start: 20190312
  8. SERTRALINE [Interacting]
     Active Substance: SERTRALINE HYDROCHLORIDE
     Indication: Depression
     Dosage: SERTRALINE HCL
     Route: 048
     Dates: start: 20190310
  9. ATORVASTATIN [Concomitant]
     Active Substance: ATORVASTATIN
     Indication: Product used for unknown indication
     Dosage: UNK
     Route: 065

REACTIONS (2)
  - Drug interaction [Unknown]
  - Electrocardiogram QT prolonged [Unknown]

NARRATIVE: CASE EVENT DATE: 20190314
